FAERS Safety Report 5231550-6 (Version None)
Quarter: 2007Q1

REPORT INFORMATION
  Report Type: 
  Country: None (occurrence: None)
  Receive Date: 20061201
  Receipt Date: 20060927
  Transmission Date: 20070707
  Serious: No
  Sender: FDA-Public Use
  Company Number: 2006PV022151

PATIENT
  Age: 68 Year
  Sex: Female
  Weight: 94.3482 kg

DRUGS (9)
  1. BYETTA [Suspect]
     Indication: DIABETES MELLITUS NON-INSULIN-DEPENDENT
     Dosage: SEE IMAGE
     Route: 058
     Dates: start: 20060601, end: 20060701
  2. BYETTA [Suspect]
     Indication: DIABETES MELLITUS NON-INSULIN-DEPENDENT
     Dosage: SEE IMAGE
     Route: 058
     Dates: start: 20060701, end: 20060927
  3. METFORMIN HCL [Concomitant]
  4. ZETIA [Concomitant]
  5. BLOOD PRESSURE MEDICATION NOS [Concomitant]
  6. ASPIRIN [Concomitant]
  7. NIASPAN [Concomitant]
  8. ZOLOFT [Concomitant]
  9. XANAX [Concomitant]

REACTIONS (7)
  - DECREASED APPETITE [None]
  - ERUCTATION [None]
  - HYPOGEUSIA [None]
  - INSOMNIA [None]
  - NAUSEA [None]
  - VOMITING [None]
  - WEIGHT DECREASED [None]
